FAERS Safety Report 11417153 (Version 3)
Quarter: 2016Q4

REPORT INFORMATION
  Report Type: Spontaneous
  Country: JP (occurrence: JP)
  Receive Date: 20150825
  Receipt Date: 20161227
  Transmission Date: 20170206
  Serious: Yes (Other)
  Sender: FDA-Public Use
  Company Number: JP-TEVA-588529ISR

PATIENT
  Age: 65 Year
  Sex: Male
  Weight: 64 kg

DRUGS (16)
  1. RINDERON V [Concomitant]
     Active Substance: BETAMETHASONE VALERATE
     Indication: DECREASED APPETITE
     Dosage: 2 MILLIGRAM DAILY;
     Route: 048
     Dates: end: 20141225
  2. ALDACTONE A [Concomitant]
     Active Substance: SPIRONOLACTONE
     Indication: OEDEMA
     Dosage: 25 MILLIGRAM DAILY;
     Route: 048
  3. FENTOS [Suspect]
     Active Substance: FENTANYL
     Indication: CANCER PAIN
     Dosage: 2 MILLIGRAM DAILY;
     Route: 062
     Dates: end: 20141225
  4. LENDORMIN D [Concomitant]
     Active Substance: BROTIZOLAM
     Indication: INSOMNIA
     Dosage: .25 MILLIGRAM DAILY;
     Route: 048
     Dates: end: 20141225
  5. E-FEN BUCCAL [Suspect]
     Active Substance: FENTANYL CITRATE
     Dosage: 100-400MCG
     Route: 002
     Dates: start: 20141219, end: 20141225
  6. LECICARBON [Concomitant]
     Active Substance: SODIUM BICARBONATE\SODIUM PHOSPHATE, MONOBASIC
     Indication: CONSTIPATION
     Route: 054
     Dates: end: 20141225
  7. LASIX [Concomitant]
     Active Substance: FUROSEMIDE
     Indication: OEDEMA
     Dosage: 40 MILLIGRAM DAILY;
     Route: 048
     Dates: end: 20141225
  8. POSTERISAN [Concomitant]
     Active Substance: LIDOCAINE
     Indication: HAEMORRHOIDS
     Route: 062
  9. PIARLE [Concomitant]
     Dosage: 6.8 GRAM DAILY;
     Route: 048
     Dates: start: 20141225, end: 20150101
  10. OXINORM [Concomitant]
     Active Substance: OXYCODONE HYDROCHLORIDE
     Indication: BREAKTHROUGH PAIN
     Dosage: DRUG WITHDRAWN
     Route: 048
     Dates: end: 20151225
  11. E-FEN BUCCAL [Suspect]
     Active Substance: FENTANYL CITRATE
     Indication: BREAKTHROUGH PAIN
     Dosage: 200 MICROGRAM DAILY;
     Route: 002
     Dates: start: 20141217, end: 20141217
  12. VERAPAMIL HCL [Suspect]
     Active Substance: VERAPAMIL HYDROCHLORIDE
     Indication: BREAKTHROUGH PAIN
     Route: 048
     Dates: start: 20141221, end: 20141225
  13. LANSOPRAZOLE OD [Concomitant]
     Active Substance: LANSOPRAZOLE
     Indication: ABDOMINAL PAIN
     Dosage: 30 MILLIGRAM DAILY;
     Route: 048
     Dates: end: 20141225
  14. OXIFAST [Suspect]
     Active Substance: OXYCODONE
     Indication: BREAKTHROUGH PAIN
     Route: 042
     Dates: start: 20141225, end: 20141231
  15. CELECOX [Concomitant]
     Active Substance: CELECOXIB
     Indication: CANCER PAIN
     Dosage: 400 MILLIGRAM DAILY;
     Route: 048
  16. CELECOX [Concomitant]
     Active Substance: CELECOXIB
     Dosage: 200 MILLIGRAM DAILY;
     Route: 048
     Dates: start: 20141225

REACTIONS (4)
  - Somnolence [Recovered/Resolved]
  - Delirium [Recovered/Resolved]
  - Malaise [Not Recovered/Not Resolved]
  - Nausea [Recovered/Resolved]

NARRATIVE: CASE EVENT DATE: 20141219
